FAERS Safety Report 9789601 (Version 2)
Quarter: 2014Q1

REPORT INFORMATION
  Report Type: Spontaneous
  Country: US (occurrence: US)
  Receive Date: 20131231
  Receipt Date: 20140113
  Transmission Date: 20141002
  Serious: Yes (Other)
  Sender: FDA-Public Use
  Company Number: US-BRISTOL-MYERS SQUIBB COMPANY-19946672

PATIENT
  Age: 26 Year
  Sex: Male
  Weight: 124 kg

DRUGS (3)
  1. ABILIFY [Suspect]
     Indication: SCHIZOPHRENIA
     Dosage: 30MG: 04NOV13
     Route: 048
     Dates: start: 20131030
  2. ABILIFY MAINTENA INJECTION [Suspect]
     Indication: SCHIZOPHRENIA
     Route: 030
     Dates: start: 201306
  3. DEPAKOTE ER [Suspect]
     Indication: SCHIZOPHRENIA
     Dosage: AT NIGHT TIME

REACTIONS (4)
  - Hallucination [Recovering/Resolving]
  - Delusion [Recovering/Resolving]
  - Thinking abnormal [Recovering/Resolving]
  - Drug ineffective [Unknown]
